FAERS Safety Report 5405536-2 (Version None)
Quarter: 2007Q3

REPORT INFORMATION
  Report Type: 
  Country: None (occurrence: None)
  Receive Date: 20070803
  Receipt Date: 20070727
  Transmission Date: 20080115
  Serious: Yes (Other)
  Sender: FDA-Public Use
  Company Number: JP-MERCK-0707USA03075

PATIENT
  Age: 57 Year
  Sex: Male

DRUGS (9)
  1. PEPCID RPD [Suspect]
     Indication: GASTRITIS
     Route: 048
  2. ATELEC [Suspect]
     Indication: HYPERTENSION
     Route: 048
  3. DEPAS [Suspect]
     Indication: ANXIETY DISORDER
     Route: 048
  4. AMARYL [Suspect]
     Indication: DIABETES MELLITUS
     Route: 048
     Dates: end: 20070511
  5. CANDESARTAN CILEXETIL [Suspect]
     Indication: HYPERTENSION
     Route: 048
  6. PAXIL [Suspect]
     Indication: DEPRESSION
     Route: 048
  7. ACTOS [Suspect]
     Indication: DIABETES MELLITUS
     Route: 048
     Dates: end: 20070511
  8. MIGLITOL [Suspect]
     Indication: DIABETES MELLITUS
     Route: 048
     Dates: end: 20070410
  9. ASPIRIN [Suspect]
     Indication: CEREBRAL INFARCTION
     Route: 048

REACTIONS (1)
  - LIVER DISORDER [None]
